FAERS Safety Report 6835212-0 (Version None)
Quarter: 2010Q3

REPORT INFORMATION
  Report Type: 
  Country: None (occurrence: None)
  Receive Date: 20100713
  Receipt Date: 20100701
  Transmission Date: 20110219
  Serious: Yes (Hospitalization)
  Sender: FDA-Public Use
  Company Number: JP-SHIRE-SPV1-2010-00110

PATIENT

DRUGS (13)
  1. LANTHANUM CARBONATE [Suspect]
     Indication: HYPERPHOSPHATAEMIA
     Dosage: 750 MG TOTAL DAILY DOSE (IMMEDIATELY AFTER MEALS)
     Route: 048
     Dates: start: 20090611, end: 20091014
  2. CALCIUM CARBONATE [Concomitant]
     Indication: HYPERPHOSPHATAEMIA
     Dosage: 2 G, UNKNOWN
     Route: 048
     Dates: start: 20060630, end: 20091027
  3. CALCIUM CARBONATE [Concomitant]
     Dosage: 1.5 G, UNKNOWN
     Route: 048
     Dates: start: 20091028, end: 20091117
  4. CALCIUM CARBONATE [Concomitant]
     Dosage: 1 G, UNKNOWN
     Route: 048
     Dates: start: 20091118, end: 20091125
  5. ROCALTROL [Concomitant]
     Indication: PRODUCT USED FOR UNKNOWN INDICATION
     Dosage: UNK, UNKNOWN
     Route: 042
     Dates: end: 20090915
  6. ROCALTROL [Concomitant]
     Dosage: .5 UG, UNK
     Route: 042
     Dates: start: 20090917
  7. TAKEPRON [Concomitant]
     Indication: PRODUCT USED FOR UNKNOWN INDICATION
     Dosage: 15 MG, UNKNOWN
     Route: 048
  8. WARFARIN SODIUM [Concomitant]
     Indication: PRODUCT USED FOR UNKNOWN INDICATION
     Dosage: 3.75 MG, UNKNOWN
     Route: 048
  9. ASPIRIN [Concomitant]
     Indication: PRODUCT USED FOR UNKNOWN INDICATION
     Dosage: 100 MG, UNKNOWN
     Route: 048
  10. LENDORMIN DAINIPPO [Concomitant]
     Indication: PRODUCT USED FOR UNKNOWN INDICATION
     Dosage: .25 MG, UNKNOWN
     Route: 048
  11. NESP [Concomitant]
     Indication: PRODUCT USED FOR UNKNOWN INDICATION
     Dosage: 20 UG, UNKNOWN
     Route: 042
  12. LANDSEN [Concomitant]
     Indication: PRODUCT USED FOR UNKNOWN INDICATION
     Dosage: .5 MG, UNKNOWN
     Route: 048
  13. RENAGEL                            /01459901/ [Concomitant]
     Indication: HYPERPHOSPHATAEMIA
     Dosage: 3000 MG, UNKNOWN
     Route: 048

REACTIONS (3)
  - CONTUSION [None]
  - HYPOALBUMINAEMIA [None]
  - SKIN ULCER [None]
